FAERS Safety Report 4961290-X (Version None)
Quarter: 2006Q1

REPORT INFORMATION
  Report Type: 
  Country: None (occurrence: None)
  Receive Date: 20060201
  Receipt Date: 20051201
  Transmission Date: 20060701
  Serious: No
  Sender: FDA-Public Use
  Company Number: 2005PV005224

PATIENT
  Age: 71 Year
  Sex: Female
  Weight: 126.5536 kg

DRUGS (10)
  1. BYETTA [Suspect]
     Indication: DIABETES MELLITUS NON-INSULIN-DEPENDENT
     Dosage: 5 MCG;BID;SC
     Route: 058
     Dates: start: 20051101
  2. AMARYL [Concomitant]
  3. GLUCOPHAGE [Concomitant]
  4. TOPROL-XL [Concomitant]
  5. LOTREL [Concomitant]
  6. LIPITOR [Concomitant]
  7. SYNTHROID [Concomitant]
  8. ALLOPURINOL [Concomitant]
  9. ASPIRIN [Concomitant]
  10. DOCUSATE SODIUM [Concomitant]

REACTIONS (5)
  - CONSTIPATION [None]
  - FAECES HARD [None]
  - FLATULENCE [None]
  - GASTROINTESTINAL PAIN [None]
  - NAUSEA [None]
